FAERS Safety Report 7679138-1 (Version None)
Quarter: 2011Q3

REPORT INFORMATION
  Report Type: 
  Country: None (occurrence: None)
  Receive Date: 20110812
  Receipt Date: 20110801
  Transmission Date: 20111222
  Serious: Yes (Death)
  Sender: FDA-Public Use
  Company Number: US-ELI_LILLY_AND_COMPANY-US201108001274

PATIENT
  Sex: Female

DRUGS (14)
  1. WARFARIN [Concomitant]
     Dosage: 3 MG, UNK
  2. VITAMIN E [Concomitant]
  3. VITAMIN D [Concomitant]
  4. CALCIUM CARBONATE [Concomitant]
     Dosage: UNK, QD
  5. ALLEGRA [Concomitant]
     Dosage: 180 MG, QD
  6. FORTEO [Suspect]
     Indication: OSTEOPOROSIS
     Dosage: 20 UG, QD
     Dates: start: 20110601
  7. METOPROLOL TARTRATE [Concomitant]
     Dosage: 25 MG, TID
  8. XANAX [Concomitant]
     Dosage: .5 MG, UNK
  9. LASIX [Concomitant]
     Dosage: 20 UG, QD
  10. ASCORBIC ACID [Concomitant]
  11. ASPIRIN [Concomitant]
     Dosage: 81 MG, QD
  12. NEXIUM [Concomitant]
     Dosage: 40 MG, QD
  13. DILTIAZEM [Concomitant]
     Dosage: 120 MG, QD
  14. VITAMIN B [Concomitant]

REACTIONS (2)
  - DEATH [None]
  - ABDOMINAL PAIN UPPER [None]
